FAERS Safety Report 5660163-7 (Version None)
Quarter: 2008Q1

REPORT INFORMATION
  Report Type: 
  Country: None (occurrence: None)
  Receive Date: 20080310
  Receipt Date: 20080310
  Transmission Date: 20080703
  Serious: Yes (Hospitalization)
  Sender: FDA-Public Use
  Company Number: None

PATIENT
  Sex: Female

DRUGS (1)
  1. VENOFER [Suspect]
     Dosage: 500MG  IV DRIP  (DURATION OVER 3 HOURS)
     Route: 041
     Dates: start: 20080229, end: 20080229

REACTIONS (8)
  - ARTHRALGIA [None]
  - DYSPNOEA [None]
  - ERYTHEMA [None]
  - HEART RATE INCREASED [None]
  - INFUSION RELATED REACTION [None]
  - LIVEDO RETICULARIS [None]
  - SWELLING [None]
  - TEARFULNESS [None]
